FAERS Safety Report 6405494-8 (Version None)
Quarter: 2009Q4

REPORT INFORMATION
  Report Type: 
  Country: None (occurrence: None)
  Receive Date: 20091019
  Receipt Date: 20091007
  Transmission Date: 20100525
  Serious: Yes (Other)
  Sender: FDA-Public Use
  Company Number: US-MYLANLABS-2009S1012736

PATIENT
  Age: 17 Year
  Sex: Male
  Weight: 61.24 kg

DRUGS (1)
  1. AMNESTEEM [Suspect]
     Dates: start: 20090304, end: 20090617

REACTIONS (1)
  - ANKYLOSING SPONDYLITIS [None]
